FAERS Safety Report 4535987-X (Version None)
Quarter: 2004Q4

REPORT INFORMATION
  Report Type: 
  Country: None (occurrence: None)
  Receive Date: 20041216
  Receipt Date: 20031125
  Transmission Date: 20050328
  Serious: Yes (Other)
  Sender: FDA-Public Use
  Company Number: HQWYE301026NOV03

PATIENT
  Age: 16 Year
  Sex: Female
  Weight: 52.21 kg

DRUGS (4)
  1. EFFEXOR XR [Suspect]
     Indication: DEPRESSION
     Dosage: 150 MG 1X PER 1 DAY, ORAL
     Route: 048
     Dates: start: 20030101, end: 20030601
  2. EFFEXOR XR [Suspect]
     Indication: DEPRESSION
     Dosage: 150 MG 1X PER 1 DAY, ORAL
     Route: 048
     Dates: start: 20030801
  3. MAXAIR [Concomitant]
  4. ALBUTEROL [Concomitant]

REACTIONS (1)
  - SUDDEN HEARING LOSS [None]
